FAERS Safety Report 5311848-3 (Version None)
Quarter: 2007Q2

REPORT INFORMATION
  Report Type: 
  Country: None (occurrence: None)
  Receive Date: 20070427
  Receipt Date: 20070427
  Transmission Date: 20071010
  Serious: Yes (Life-Threatening, Hospitalization)
  Sender: FDA-Public Use
  Company Number: None

PATIENT
  Sex: Male
  Weight: 89.3586 kg

DRUGS (1)
  1. DONEPEZIL HCL [Suspect]
     Indication: MEMORY IMPAIRMENT
     Dosage: 10 MG  DAILY  PO
     Route: 048
     Dates: start: 20051129, end: 20070304

REACTIONS (5)
  - ABDOMINAL PAIN LOWER [None]
  - ATRIOVENTRICULAR BLOCK FIRST DEGREE [None]
  - ATRIOVENTRICULAR BLOCK SECOND DEGREE [None]
  - NAUSEA [None]
  - RECTAL HAEMORRHAGE [None]
